FAERS Safety Report 5819592-0 (Version None)
Quarter: 2008Q3

REPORT INFORMATION
  Report Type: 
  Country: None (occurrence: None)
  Receive Date: 20080723
  Receipt Date: 20080716
  Transmission Date: 20090109
  Serious: Yes (Death, Hospitalization, Other)
  Sender: FDA-Public Use
  Company Number: DK-ABBOTT-08P-044-0454751-00

PATIENT
  Sex: Male

DRUGS (5)
  1. HUMIRA [Suspect]
     Indication: ARTHRITIS
     Route: 058
     Dates: start: 20070712, end: 20071105
  2. REMICADE [Suspect]
     Indication: DRUG USE FOR UNKNOWN INDICATION
     Dosage: STANDARD DOSE
     Route: 042
     Dates: start: 20060717, end: 20070712
  3. PREDNISOLONE [Concomitant]
     Indication: DRUG USE FOR UNKNOWN INDICATION
     Dates: start: 20060717, end: 20071105
  4. SULFASALAZINE [Concomitant]
     Indication: DRUG USE FOR UNKNOWN INDICATION
     Dates: start: 20060717, end: 20060828
  5. METHOTREXATE SODIUM [Concomitant]
     Indication: DRUG USE FOR UNKNOWN INDICATION
     Dates: start: 20071105, end: 20071105

REACTIONS (8)
  - AORTIC STENOSIS [None]
  - ARTERIAL INSUFFICIENCY [None]
  - CARDIAC FAILURE [None]
  - LUNG NEOPLASM MALIGNANT [None]
  - NECROSIS [None]
  - PNEUMONIA [None]
  - PULMONARY HYPERTENSION [None]
  - TOE AMPUTATION [None]
